FAERS Safety Report 17012456 (Version 4)
Quarter: 2020Q1

REPORT INFORMATION
  Report Type: Report from Study
  Country: KR (occurrence: KR)
  Receive Date: 20191108
  Receipt Date: 20200102
  Transmission Date: 20200409
  Serious: Yes (Other)
  Sender: FDA-Public Use
  Company Number: NVSC2019KR017460

PATIENT
  Age: 62 Year
  Sex: Male

DRUGS (1)
  1. COSENTYX [Suspect]
     Active Substance: SECUKINUMAB
     Indication: PSORIASIS
     Dosage: 300 MG, QW
     Route: 058
     Dates: start: 20190830, end: 20190927

REACTIONS (11)
  - Psoriasis [Not Recovered/Not Resolved]
  - Fungal oesophagitis [Not Recovered/Not Resolved]
  - Dry mouth [Recovering/Resolving]
  - Cyanosis [Not Recovered/Not Resolved]
  - Oropharyngeal discomfort [Not Recovered/Not Resolved]
  - Blood glucose increased [Not Recovered/Not Resolved]
  - Oral discomfort [Recovering/Resolving]
  - Dyspnoea [Recovering/Resolving]
  - Constipation [Recovered/Resolved]
  - Rhinitis [Recovering/Resolving]
  - Anaesthesia oral [Not Recovered/Not Resolved]

NARRATIVE: CASE EVENT DATE: 2019
